FAERS Safety Report 9217687 (Version 1)
Quarter: 2013Q2

REPORT INFORMATION
  Report Type: Spontaneous
  Country: GB (occurrence: GB)
  Receive Date: 20130408
  Receipt Date: 20130408
  Transmission Date: 20140414
  Serious: Yes (Other)
  Sender: FDA-Public Use
  Company Number: GB-ROCHE-1211091

PATIENT
  Age: 77 Year
  Sex: Female

DRUGS (5)
  1. LUCENTIS [Suspect]
     Indication: AGE-RELATED MACULAR DEGENERATION
     Route: 065
     Dates: start: 20130304, end: 20130304
  2. LISINOPRIL [Concomitant]
  3. DOXAZOSIN [Concomitant]
  4. SIMVASTATIN [Concomitant]
  5. BENDROFLUMETHIAZIDE [Concomitant]

REACTIONS (1)
  - Myocardial infarction [Recovering/Resolving]
